FAERS Safety Report 13442558 (Version 1)
Quarter: 2017Q2

REPORT INFORMATION
  Report Type: Spontaneous
  Country: US (occurrence: US)
  Receive Date: 20170414
  Receipt Date: 20170414
  Transmission Date: 20170830
  Serious: Yes (Other)
  Sender: FDA-Public Use
  Company Number: None

PATIENT
  Age: 28 Year
  Sex: Male
  Weight: 71.8 kg

DRUGS (7)
  1. PANTOPRAZOLE [Concomitant]
     Active Substance: PANTOPRAZOLE
  2. ISOVUE [Suspect]
     Active Substance: IOPAMIDOL
     Indication: PRODUCT USED FOR UNKNOWN INDICATION
     Dosage: DOSE - 128 ML X1 DOSE IV AT 2 ML/SEC
     Route: 042
     Dates: start: 20170206
  3. DULOXETINE. [Concomitant]
     Active Substance: DULOXETINE
  4. LUBIPROSTONE [Concomitant]
     Active Substance: LUBIPROSTONE
  5. IOHEXOL [Concomitant]
     Active Substance: IOHEXOL
  6. GABAPENTIN. [Concomitant]
     Active Substance: GABAPENTIN
  7. Z-ENDOXIFEN [Concomitant]

REACTIONS (5)
  - Rash pruritic [None]
  - Heart rate decreased [None]
  - Contrast media reaction [None]
  - Pruritus [None]
  - Rash erythematous [None]

NARRATIVE: CASE EVENT DATE: 20170206
